FAERS Safety Report 5239916-5 (Version None)
Quarter: 2007Q1

REPORT INFORMATION
  Report Type: 
  Country: None (occurrence: None)
  Receive Date: 20070216
  Receipt Date: 20070206
  Transmission Date: 20070707
  Serious: Yes (Hospitalization, Other)
  Sender: FDA-Public Use
  Company Number: US-PFIZER INC-2005127204

PATIENT
  Sex: Female
  Weight: 59 kg

DRUGS (14)
  1. SUTENT [Suspect]
     Indication: RENAL CELL CARCINOMA STAGE UNSPECIFIED
     Route: 048
     Dates: start: 20050427, end: 20050927
  2. PEPCID [Concomitant]
     Indication: NAUSEA
     Route: 048
  3. FOSAMAX [Concomitant]
     Indication: OSTEOPOROSIS
     Route: 048
  4. AREDIA [Concomitant]
     Indication: HYPERCALCAEMIA
     Route: 058
  5. COMPAZINE [Concomitant]
     Indication: NAUSEA
     Route: 048
  6. VICODIN [Concomitant]
     Indication: PAIN
     Route: 048
  7. COLACE [Concomitant]
     Indication: CONSTIPATION
     Route: 048
  8. LOPRESSOR [Concomitant]
     Indication: HYPERTENSION
     Route: 048
  9. HYCODAN [Concomitant]
     Indication: COUGH
     Route: 048
  10. ROXANOL [Concomitant]
     Indication: PAIN
     Route: 048
  11. LASIX [Concomitant]
     Indication: ASCITES
     Route: 048
  12. ALDACTONE [Concomitant]
     Indication: ASCITES
     Route: 048
     Dates: start: 20050706, end: 20050901
  13. ATIVAN [Concomitant]
     Indication: NAUSEA
     Route: 048
  14. NEURONTIN [Concomitant]
     Indication: PAIN IN EXTREMITY
     Route: 048

REACTIONS (7)
  - ADRENAL INSUFFICIENCY [None]
  - ASCITES [None]
  - ASTHENIA [None]
  - DEEP VEIN THROMBOSIS [None]
  - DEHYDRATION [None]
  - FATIGUE [None]
  - PLEURAL EFFUSION [None]
